FAERS Safety Report 4767171-9 (Version None)
Quarter: 2005Q3

REPORT INFORMATION
  Report Type: 
  Country: None (occurrence: None)
  Receive Date: 20050909
  Receipt Date: 20050909
  Transmission Date: 20060218
  Serious: Yes (Hospitalization)
  Sender: FDA-Public Use
  Company Number: None

PATIENT
  Age: 77 Year
  Sex: Male
  Weight: 98.4306 kg

DRUGS (2)
  1. HEPARIN [Suspect]
     Indication: ANTIPHOSPHOLIPID SYNDROME
     Dosage: TITRATE CONTINUOUS IV
     Route: 042
     Dates: start: 20050820, end: 20050827
  2. ENOXAPARIN 100 MG/ML [Suspect]
     Indication: ANTIPHOSPHOLIPID SYNDROME
     Dosage: 100 MG  BID  SQ
     Route: 058
     Dates: start: 20050827, end: 20050830

REACTIONS (4)
  - ANTIBODY TEST POSITIVE [None]
  - HAEMORRHAGE [None]
  - HEPARIN-INDUCED THROMBOCYTOPENIA TEST [None]
  - PLATELET COUNT DECREASED [None]
